FAERS Safety Report 20611698 (Version 1)
Quarter: 2022Q1

REPORT INFORMATION
  Report Type: Spontaneous
  Country: NL (occurrence: NL)
  Receive Date: 20220318
  Receipt Date: 20220318
  Transmission Date: 20220423
  Serious: Yes (Other)
  Sender: FDA-Public Use
  Company Number: None

PATIENT
  Age: 14 Year
  Sex: Male
  Weight: 45 kg

DRUGS (4)
  1. DIAZEPAM [Suspect]
     Active Substance: DIAZEPAM
     Indication: Myalgia
     Dosage: 125 MILLIGRAM DAILY; 12.5 TABLETS IN A DAY, DIAZEPAM TABLET 10MG / BRAND NAME NOT SPECIFIED
     Route: 065
     Dates: start: 20220117, end: 20220117
  2. TRAMADOL HYDROCHLORIDE [Concomitant]
     Active Substance: TRAMADOL HYDROCHLORIDE
     Dosage: UNKNOWN,THERAPY START DATE ASKU, THERAPY END DATE ASKU, BRAND NAME NOT SPECIFIED
  3. WHITE CROSS PARACETAMOL [Concomitant]
     Dosage: UNKNOWN,PARACETAMOL GRANULATE 500MG / WHITE CROSS PARACETAMOL GRANULATE 500MG IN SACHET, THERAPY STA
  4. NEXIUM [Concomitant]
     Active Substance: ESOMEPRAZOLE MAGNESIUM
     Dosage: UNKNOWN,ESOMEPRAZOL TABLET MSR 20MG / NEXIUM TABLET MSR 20MG,THERAPY START DATE ASKU, THERAPY END DA

REACTIONS (1)
  - Altered state of consciousness [Recovered/Resolved]

NARRATIVE: CASE EVENT DATE: 20220117
